FAERS Safety Report 9815109 (Version 5)
Quarter: 2014Q2

REPORT INFORMATION
  Report Type: Spontaneous
  Country: US (occurrence: US)
  Receive Date: 20140114
  Receipt Date: 20140410
  Transmission Date: 20141212
  Serious: Yes (Hospitalization, Other)
  Sender: FDA-Public Use
  Company Number: US-BIOGENIDEC-2014BI002376

PATIENT
  Age: 67 None
  Sex: Female

DRUGS (4)
  1. AVONEX [Suspect]
     Indication: MULTIPLE SCLEROSIS
     Route: 030
     Dates: start: 19960801, end: 20130501
  2. AVONEX [Suspect]
     Indication: MULTIPLE SCLEROSIS
     Route: 030
     Dates: start: 20131224, end: 20131224
  3. AVONEX [Suspect]
     Indication: MULTIPLE SCLEROSIS
     Route: 030
     Dates: start: 20140131
  4. AVONEX [Suspect]
     Indication: MULTIPLE SCLEROSIS
     Route: 030
     Dates: start: 20140226

REACTIONS (20)
  - Abdominal pain upper [Recovered/Resolved]
  - Hallucination [Recovered/Resolved]
  - Delusion [Recovered/Resolved]
  - Fear [Not Recovered/Not Resolved]
  - Stress [Not Recovered/Not Resolved]
  - Renal failure [Unknown]
  - Gallbladder disorder [Not Recovered/Not Resolved]
  - Eye prosthesis insertion [Unknown]
  - Anxiety [Not Recovered/Not Resolved]
  - Tremor [Recovered/Resolved]
  - Gait disturbance [Recovered/Resolved]
  - Ill-defined disorder [Not Recovered/Not Resolved]
  - Incorrect drug dosage form administered [Recovered/Resolved]
  - Incorrect dose administered [Recovered/Resolved]
  - Eye movement disorder [Recovered/Resolved]
  - Panic attack [Recovered/Resolved]
  - Renal disorder [Not Recovered/Not Resolved]
  - Mania [Not Recovered/Not Resolved]
  - Chills [Recovered/Resolved]
  - Feeling abnormal [Recovered/Resolved]
